FAERS Safety Report 18306994 (Version 1)
Quarter: 2020Q3

REPORT INFORMATION
  Report Type: Spontaneous
  Country: CO (occurrence: CO)
  Receive Date: 20200924
  Receipt Date: 20200924
  Transmission Date: 20201103
  Serious: Yes (Other)
  Sender: FDA-Public Use
  Company Number: CO-BRISTOL-MYERS SQUIBB COMPANY-BMS-2020-076868

PATIENT
  Sex: Male
  Weight: 76 kg

DRUGS (1)
  1. COUMADIN [Suspect]
     Active Substance: WARFARIN SODIUM
     Indication: EMBOLISM VENOUS
     Dosage: 5 MILLIGRAM, QD
     Route: 048
     Dates: start: 2010, end: 202006

REACTIONS (2)
  - Inguinal hernia [Unknown]
  - Tooth disorder [Unknown]
